APPROVED DRUG PRODUCT: TOBRAMYCIN SULFATE
Active Ingredient: TOBRAMYCIN SULFATE
Strength: EQ 1.2GM BASE/VIAL
Dosage Form/Route: INJECTABLE;INJECTION
Application: A217029 | Product #001 | TE Code: AP
Applicant: SLATE RUN PHARMACEUTICALS LLC
Approved: Feb 1, 2023 | RLD: No | RS: No | Type: RX